FAERS Safety Report 5519126-4 (Version None)
Quarter: 2007Q4

REPORT INFORMATION
  Report Type: 
  Country: None (occurrence: None)
  Receive Date: 20071114
  Receipt Date: 20071114
  Transmission Date: 20080405
  Serious: Yes (Hospitalization)
  Sender: FDA-Public Use
  Company Number: None

PATIENT
  Age: 29 Year
  Sex: Male
  Weight: 104.3273 kg

DRUGS (1)
  1. TRIAMTERENE W/ HYDROCHLOROTHIAZIDE [Suspect]
     Indication: INNER EAR DISORDER
     Dosage: 1 TABLET DAILY PO
     Route: 048
     Dates: start: 19900101, end: 19960101

REACTIONS (3)
  - HEART RATE INCREASED [None]
  - PNEUMONIA [None]
  - TREMOR [None]
